FAERS Safety Report 8070904-X (Version None)
Quarter: 2012Q1

REPORT INFORMATION
  Report Type: 
  Country: None (occurrence: None)
  Receive Date: 20120119
  Receipt Date: 20120111
  Transmission Date: 20120608
  Serious: Yes (Other)
  Sender: FDA-Public Use
  Company Number: ACO_28944_2012

PATIENT
  Age: 47 Year
  Sex: Female
  Weight: 98.4 kg

DRUGS (16)
  1. VENLAFAXINE [Concomitant]
  2. AMPYRA [Suspect]
     Indication: GAIT DISTURBANCE
     Dosage: 10 MG, BID, ORAL
     Route: 048
     Dates: start: 20110819
  3. BACLOFEN [Concomitant]
  4. COLACE (DOCUSATE SODIUM) [Concomitant]
  5. ADVIL (MEFENAMIC ACID) [Concomitant]
  6. PROPRANOLOL [Concomitant]
  7. ACETAMINOPHEN [Concomitant]
  8. VITAMIN D [Concomitant]
  9. GLUCOSAMINE CHONDROITIN (CHONDROITIN SULFATE, GLUCOSAMINE SULFATE) [Concomitant]
  10. GABAPENTIN [Concomitant]
  11. DIAZEPAM [Concomitant]
  12. EVENING PRIMROSE OIL (OENOTHERA BIENNIS OIL) [Concomitant]
  13. MAGNESIUM (MAGNESIUM) [Concomitant]
  14. MELATONIN (MELATONIN) [Concomitant]
  15. REBIF [Concomitant]
  16. SIMVASTATIN [Concomitant]

REACTIONS (1)
  - OPTIC NEURITIS [None]
